FAERS Safety Report 7639287-0 (Version None)
Quarter: 2011Q3

REPORT INFORMATION
  Report Type: 
  Country: None (occurrence: None)
  Receive Date: 20110727
  Receipt Date: 20110720
  Transmission Date: 20111222
  Serious: Yes (Death, Life-Threatening, Hospitalization)
  Sender: FDA-Public Use
  Company Number: JP-MERCK-1104USA00094

PATIENT
  Age: 57 Year
  Sex: Male
  Weight: 64 kg

DRUGS (15)
  1. JANUVIA [Suspect]
     Route: 048
     Dates: start: 20110106, end: 20110202
  2. CARVEDILOL [Concomitant]
     Indication: CARDIAC FAILURE
     Route: 048
     Dates: start: 20051222, end: 20110406
  3. KINEDAK [Concomitant]
     Indication: NEURALGIA
     Route: 048
     Dates: start: 20050328, end: 20110323
  4. MEXITIL [Concomitant]
     Indication: NEURALGIA
     Route: 048
     Dates: start: 20090423, end: 20110323
  5. PROGRAF [Concomitant]
     Indication: MYASTHENIA GRAVIS
     Route: 048
     Dates: start: 20000301, end: 20110327
  6. VASOTEC [Concomitant]
     Indication: CARDIAC FAILURE
     Route: 048
     Dates: start: 20050107
  7. PREDNISOLONE [Concomitant]
     Indication: MYASTHENIA GRAVIS
     Route: 048
     Dates: start: 20000301
  8. AMARYL [Concomitant]
     Indication: DIABETES MELLITUS
     Route: 048
     Dates: start: 20091022, end: 20110331
  9. LASIX [Concomitant]
     Indication: CARDIAC FAILURE
     Route: 048
     Dates: start: 20050113
  10. ASPIRIN [Concomitant]
     Indication: MYOCARDIAL INFARCTION
     Route: 048
     Dates: start: 20050106, end: 20110328
  11. SIGMART [Concomitant]
     Indication: MYOCARDIAL INFARCTION
     Route: 048
     Dates: start: 20050112, end: 20110331
  12. LANSOPRAZOLE [Concomitant]
     Indication: PROPHYLAXIS AGAINST GASTROINTESTINAL ULCER
     Route: 048
     Dates: start: 20090723, end: 20110331
  13. JANUVIA [Suspect]
     Indication: DIABETES MELLITUS
     Route: 048
     Dates: start: 20110203, end: 20110326
  14. TICLOPIDINE HCL [Concomitant]
     Indication: MYOCARDIAL INFARCTION
     Route: 048
     Dates: start: 20050106, end: 20110328
  15. BASEN OD [Concomitant]
     Indication: DIABETES MELLITUS
     Route: 048
     Dates: start: 20050111, end: 20110328

REACTIONS (6)
  - DISSEMINATED INTRAVASCULAR COAGULATION [None]
  - CARDIAC FAILURE [None]
  - PNEUMONIA CYTOMEGALOVIRAL [None]
  - CARDIO-RESPIRATORY ARREST [None]
  - SEPSIS [None]
  - LIVER DISORDER [None]
